FAERS Safety Report 4578249-7 (Version None)
Quarter: 2005Q1

REPORT INFORMATION
  Report Type: 
  Country: None (occurrence: None)
  Receive Date: 20050209
  Receipt Date: 20050120
  Transmission Date: 20050727
  Serious: Yes (Other)
  Sender: FDA-Public Use
  Company Number: USA050188876

PATIENT
  Age: 8 Year
  Sex: Male

DRUGS (2)
  1. STRATTERA [Suspect]
     Indication: ATTENTION DEFICIT/HYPERACTIVITY DISORDER
     Dosage: 25 MG DAY
     Dates: start: 20040201
  2. CONCERTA [Concomitant]

REACTIONS (4)
  - CONVULSION [None]
  - PHOTOPHOBIA [None]
  - SOMNOLENCE [None]
  - URINARY INCONTINENCE [None]
